FAERS Safety Report 7525408-7 (Version None)
Quarter: 2011Q2

REPORT INFORMATION
  Report Type: 
  Country: None (occurrence: None)
  Receive Date: 20110606
  Receipt Date: 20110527
  Transmission Date: 20111010
  Serious: Yes (Hospitalization, Other)
  Sender: FDA-Public Use
  Company Number: US-PFIZER INC-2011115246

PATIENT
  Age: 64 Year
  Sex: Female

DRUGS (1)
  1. SOLU-MEDROL [Suspect]
     Indication: INFUSION RELATED REACTION
     Dosage: UNK
     Dates: start: 20110323

REACTIONS (1)
  - CONFUSIONAL STATE [None]
